FAERS Safety Report 24605219 (Version 1)
Quarter: 2024Q4

REPORT INFORMATION
  Report Type: Spontaneous
  Country: DE (occurrence: DE)
  Receive Date: 20241111
  Receipt Date: 20241111
  Transmission Date: 20250114
  Serious: Yes (Hospitalization, Other)
  Sender: ELI LILLY AND COMPANY
  Company Number: DE-ELI_LILLY_AND_COMPANY-DE202410021680

PATIENT
  Age: 65 Year
  Sex: Female

DRUGS (3)
  1. TALTZ [Suspect]
     Active Substance: IXEKIZUMAB
     Indication: Rheumatic disorder
     Dosage: UNK UNK, UNKNOWN
     Route: 065
  2. CELEBREX [Concomitant]
     Active Substance: CELECOXIB
     Indication: Product used for unknown indication
  3. NOVALGIN (METAMIZOLE SODIUM) [Concomitant]
     Active Substance: METAMIZOLE SODIUM
     Indication: Product used for unknown indication

REACTIONS (7)
  - Pneumonia [Unknown]
  - Lung neoplasm malignant [Unknown]
  - Weight decreased [Unknown]
  - Ascites [Unknown]
  - Dental cyst [Unknown]
  - Stomatitis [Unknown]
  - Off label use [Unknown]
